FAERS Safety Report 25063275 (Version 8)
Quarter: 2025Q4

REPORT INFORMATION
  Report Type: Spontaneous
  Country: JP (occurrence: JP)
  Receive Date: 20250311
  Receipt Date: 20251128
  Transmission Date: 20260117
  Serious: Yes (Death, Hospitalization, Other)
  Sender: GILEAD
  Company Number: JP-GILEAD-2025-0706636

PATIENT
  Age: 67 Year
  Sex: Female
  Weight: 53 kg

DRUGS (9)
  1. TRODELVY [Suspect]
     Active Substance: SACITUZUMAB GOVITECAN-HZIY
     Indication: Triple negative breast cancer
     Dosage: 537 ML, QD
     Route: 041
     Dates: start: 20250213, end: 20250220
  2. BIO-THREE [Concomitant]
     Active Substance: HERBALS
     Indication: Constipation
     Dosage: 1 DOSAGE FORM, TID
     Route: 048
     Dates: start: 20250220, end: 20250223
  3. NAPROXEN [Concomitant]
     Active Substance: NAPROXEN
     Indication: Pyrexia
     Dosage: 100 MG, TID
     Route: 048
     Dates: start: 20250130, end: 20250223
  4. DECADRON [Concomitant]
     Active Substance: DEXAMETHASONE
     Indication: Malaise
     Dosage: 1 MG, PRN
     Route: 048
     Dates: start: 20250130, end: 20250223
  5. LOPERAMIDE HYDROCHLORIDE [Concomitant]
     Active Substance: LOPERAMIDE HYDROCHLORIDE
     Indication: Diarrhoea
     Dosage: 1 MG, PRN
     Route: 048
     Dates: start: 20240905, end: 20250223
  6. AMLODIPINE [Concomitant]
     Active Substance: AMLODIPINE BESYLATE
     Indication: Hypertension
     Dosage: 5 MG, QD
     Route: 048
     Dates: start: 20231108, end: 20250223
  7. IRBESARTAN [Concomitant]
     Active Substance: IRBESARTAN
     Indication: Hypertension
     Dosage: 100 MG, QD
     Route: 048
     Dates: start: 20231129, end: 20250223
  8. INDAPAMIDE [Concomitant]
     Active Substance: INDAPAMIDE
     Indication: Hypertension
     Dosage: 2 MG, QD
     Route: 048
     Dates: start: 20231220, end: 20250223
  9. METOCLOPRAMIDE [Concomitant]
     Active Substance: METOCLOPRAMIDE
     Indication: Prophylaxis of nausea and vomiting
     Dosage: 5 MG, PRN
     Route: 048
     Dates: start: 20250213, end: 20250223

REACTIONS (11)
  - Colitis ischaemic [Fatal]
  - Ileus [Fatal]
  - Shock haemorrhagic [Fatal]
  - Small intestinal perforation [Fatal]
  - Neutropenia [Fatal]
  - Septic shock [Fatal]
  - Disseminated intravascular coagulation [Fatal]
  - Post procedural haemorrhage [Unknown]
  - White blood cell count decreased [Unknown]
  - Platelet count decreased [Unknown]
  - Diarrhoea [Unknown]

NARRATIVE: CASE EVENT DATE: 20250201
